FAERS Safety Report 4499274-0 (Version None)
Quarter: 2004Q4

REPORT INFORMATION
  Report Type: 
  Country: None (occurrence: None)
  Receive Date: 20041111
  Receipt Date: 20041102
  Transmission Date: 20050328
  Serious: Yes (Death)
  Sender: FDA-Public Use
  Company Number: US-JNJFOC-20040908624

PATIENT
  Age: 69 Year

DRUGS (4)
  1. CHLORZOXAZONE [Suspect]
     Indication: DRUG USE FOR UNKNOWN INDICATION
     Dosage: 20 TABLETS
     Route: 049
  2. ACETAMINOPHEN AND HYDROCODONE BITARTRATE [Suspect]
     Route: 049
  3. ACETAMINOPHEN W/ PROPOXYPHENE HCL [Suspect]
     Indication: DRUG USE FOR UNKNOWN INDICATION
     Dosage: 20 TABLETS
     Route: 049
  4. ALPRAZOLAM [Suspect]
     Indication: DRUG USE FOR UNKNOWN INDICATION
     Dosage: 20 TABLETS
     Route: 049

REACTIONS (7)
  - BLOOD PRESSURE IMMEASURABLE [None]
  - CARDIAC ARREST [None]
  - COMA [None]
  - ELECTROMECHANICAL DISSOCIATION [None]
  - HEART RATE INCREASED [None]
  - HYPOVENTILATION [None]
  - MULTIPLE DRUG OVERDOSE INTENTIONAL [None]
